FAERS Safety Report 9681494 (Version 2)
Quarter: 2013Q4

REPORT INFORMATION
  Report Type: Report from Study
  Country: US (occurrence: US)
  Receive Date: 20131111
  Receipt Date: 20131111
  Transmission Date: 20140711
  Serious: Yes (Death, Hospitalization, Other)
  Sender: FDA-Public Use
  Company Number: US-ROCHE-1275616

PATIENT
  Age: 67 Year
  Sex: Female

DRUGS (16)
  1. RITUXIMAB [Suspect]
     Indication: CHRONIC LYMPHOCYTIC LEUKAEMIA
     Route: 065
     Dates: start: 20130207
  2. LEVOTHYROXINE [Concomitant]
  3. PREDNISONE [Concomitant]
  4. ULORIC [Concomitant]
  5. CENESTIN [Concomitant]
  6. SULFAMETHOXAZOLE/TRIMETHOPRIM [Concomitant]
     Route: 065
  7. VALACYCLOVIR HYDROCHLORIDE [Concomitant]
  8. WARFARIN [Concomitant]
  9. BENZONATATE [Concomitant]
  10. COMBIVENT [Concomitant]
  11. PROTOPIC [Concomitant]
  12. ESTRACE [Concomitant]
  13. FOSAMAX [Concomitant]
  14. METAMUCIL [Concomitant]
  15. MUCINEX [Concomitant]
  16. PLACEBO [Suspect]
     Indication: CHRONIC LYMPHOCYTIC LEUKAEMIA
     Route: 048
     Dates: start: 20130207, end: 20130330

REACTIONS (3)
  - Pneumonia fungal [Fatal]
  - Febrile neutropenia [Not Recovered/Not Resolved]
  - Diarrhoea [Not Recovered/Not Resolved]
